FAERS Safety Report 21631057 (Version 1)
Quarter: 2022Q4

REPORT INFORMATION
  Report Type: Report from Study
  Country: FR (occurrence: FR)
  Receive Date: 20221123
  Receipt Date: 20221123
  Transmission Date: 20230113
  Serious: Yes (Death, Other)
  Sender: FDA-Public Use
  Company Number: FR-MYLANLABS-2022M1122339

PATIENT

DRUGS (8)
  1. PEMETREXED [Suspect]
     Active Substance: PEMETREXED
     Indication: Non-small cell lung cancer
     Dosage: 500 MILLIGRAM/SQ. METER, DOSAGE: ON DAY 1 OF A 21-DAY CYCLE
     Route: 065
  2. PEMETREXED [Suspect]
     Active Substance: PEMETREXED
     Indication: Non-small cell lung cancer stage III
  3. CETUXIMAB [Suspect]
     Active Substance: CETUXIMAB
     Indication: Non-small cell lung cancer
     Dosage: 250 MILLIGRAM/SQ. METER, EVERY WEEK
     Route: 065
  4. CETUXIMAB [Suspect]
     Active Substance: CETUXIMAB
     Indication: Non-small cell lung cancer stage III
     Dosage: 400 MILLIGRAM/SQ. METER,DOSAGE: LOADINGOADING DOSE OF CETUXIMAB 400MG/M2 ON DAY 1 OF FIRST WEEK DOSE
     Route: 065
  5. CISPLATIN [Suspect]
     Active Substance: CISPLATIN
     Indication: Non-small cell lung cancer
     Dosage: 75 MILLIGRAM/SQ. METER, DOSAGE: ON DAY 1 OF A 21-DAY CYCLE
     Route: 065
  6. CISPLATIN [Suspect]
     Active Substance: CISPLATIN
     Indication: Non-small cell lung cancer stage III
  7. VITAMIN B12 [Concomitant]
     Active Substance: CYANOCOBALAMIN
     Indication: Vitamin supplementation
     Dosage: 1 MILLIGRAM, ONCE A DAY,
     Route: 030
  8. FOLIC ACID [Concomitant]
     Active Substance: FOLIC ACID
     Indication: Vitamin supplementation
     Dosage: 400 MICROGRAM, ONCE A DAY
     Route: 048

REACTIONS (3)
  - Radiation pneumonitis [Fatal]
  - Drug ineffective [Fatal]
  - Disease progression [Fatal]
